FAERS Safety Report 22179491 (Version 1)
Quarter: 2023Q2

REPORT INFORMATION
  Report Type: Spontaneous
  Country: US (occurrence: US)
  Receive Date: 20230406
  Receipt Date: 20230406
  Transmission Date: 20230721
  Serious: No
  Sender: FDA-Public Use
  Company Number: US-GSK-US2023049112

PATIENT
  Age: 48 Year
  Sex: Female

DRUGS (1)
  1. LAMICTAL [Suspect]
     Active Substance: LAMOTRIGINE
     Indication: Seizure
     Dosage: 150 MG, TAB 60
     Dates: start: 19890101

REACTIONS (1)
  - Bunion operation [Unknown]

NARRATIVE: CASE EVENT DATE: 20220701
